FAERS Safety Report 21172493 (Version 1)
Quarter: 2022Q3

REPORT INFORMATION
  Report Type: Spontaneous
  Country: US (occurrence: None)
  Receive Date: 20220803
  Receipt Date: 20220803
  Transmission Date: 20221027
  Serious: Yes (Hospitalization)
  Sender: FDA-Public Use
  Company Number: None

PATIENT
  Sex: Female

DRUGS (1)
  1. BENLYSTA [Suspect]
     Active Substance: BELIMUMAB
     Indication: Systemic lupus erythematosus
     Dosage: OTHER FREQUENCY : Q7 DAYS;?
     Route: 058
     Dates: start: 202101

REACTIONS (10)
  - Systemic lupus erythematosus [None]
  - Gastric ulcer [None]
  - Fibromyalgia [None]
  - Epilepsy [None]
  - Stress [None]
  - Hypophagia [None]
  - Sleep disorder [None]
  - Weight decreased [None]
  - Injection site bruising [None]
  - Gait disturbance [None]
